FAERS Safety Report 6232670-X (Version None)
Quarter: 2009Q2

REPORT INFORMATION
  Report Type: 
  Country: None (occurrence: None)
  Receive Date: 20090617
  Receipt Date: 20090603
  Transmission Date: 20091009
  Serious: Yes (Other)
  Sender: FDA-Public Use
  Company Number: US-PFIZER INC-2009223017

PATIENT
  Sex: Male
  Weight: 136.07 kg

DRUGS (3)
  1. GLYSET [Suspect]
     Indication: DIABETES MELLITUS
     Dosage: FREQUENCY: 3X/DAY, EVERY DAY;
     Dates: start: 20080101
  2. METFORMIN HYDROCHLORIDE/SITAGLIPTIN [Concomitant]
     Dosage: UNK
  3. SYMLIN [Concomitant]
     Dosage: UNK

REACTIONS (1)
  - BLOOD GLUCOSE INCREASED [None]
